FAERS Safety Report 19077594 (Version 1)
Quarter: 2021Q1

REPORT INFORMATION
  Report Type: Spontaneous
  Country: CN (occurrence: CN)
  Receive Date: 20210331
  Receipt Date: 20210331
  Transmission Date: 20210420
  Serious: Yes (Other)
  Sender: FDA-Public Use
  Company Number: CN-PFIZER INC-2021330916

PATIENT
  Age: 50 Year
  Sex: Female

DRUGS (1)
  1. VIZIMPRO [Suspect]
     Active Substance: DACOMITINIB
     Indication: LUNG ADENOCARCINOMA
     Dosage: UNK

REACTIONS (3)
  - Pericardial effusion [Unknown]
  - Off label use [Unknown]
  - Pleural effusion [Unknown]
